FAERS Safety Report 4853522-3 (Version None)
Quarter: 2005Q4

REPORT INFORMATION
  Report Type: 
  Country: None (occurrence: None)
  Receive Date: 20051212
  Receipt Date: 20051125
  Transmission Date: 20060501
  Serious: Yes (Other)
  Sender: FDA-Public Use
  Company Number: FR_051007299

PATIENT
  Age: 80 Year
  Sex: Female
  Weight: 55 kg

DRUGS (12)
  1. FORTEO [Suspect]
     Indication: OSTEOPOROSIS
     Dosage: 20 UG, DAILY (1/D), SUBCUTANEOUS
     Route: 058
     Dates: start: 20050903
  2. FORTEO PEN (FORTEO PEN) PEN, DISPOSABLE [Concomitant]
  3. DIFRAREL [Concomitant]
  4. CHONDROSULF (CHONDROITIN SULFATE SODIUM) [Concomitant]
  5. PIASCLEDINE [Concomitant]
  6. OMEPRAZOLE [Concomitant]
  7. FIXICAL (CALCIUM CARBONATE) [Concomitant]
  8. KARDEGIC (ACETYLSALICYLIC LYSINE) [Concomitant]
  9. TRAMADOL HCL [Concomitant]
  10. ACECLOFENAC (ACECLOFENAC) [Concomitant]
  11. DAFLON (DIOSMIN) [Concomitant]
  12. ZOCOR [Concomitant]

REACTIONS (7)
  - BLOOD PRESSURE INCREASED [None]
  - CONDITION AGGRAVATED [None]
  - EXTRASYSTOLES [None]
  - PALPITATIONS [None]
  - SUPRAVENTRICULAR EXTRASYSTOLES [None]
  - THERAPY NON-RESPONDER [None]
  - VENTRICULAR EXTRASYSTOLES [None]
